FAERS Safety Report 8613172-X (Version None)
Quarter: 2012Q3

REPORT INFORMATION
  Report Type: 
  Country: None (occurrence: None)
  Receive Date: 20120822
  Receipt Date: 20120817
  Transmission Date: 20120928
  Serious: Yes (Hospitalization)
  Sender: FDA-Public Use
  Company Number: FR-BAXTER-2012BAX013218

PATIENT
  Sex: Male

DRUGS (5)
  1. CYCLOPHOSPHAMIDE [Suspect]
     Route: 042
     Dates: start: 20110920, end: 20110922
  2. FLUDARABINE PHOSPHATE [Suspect]
     Route: 042
     Dates: start: 20110920, end: 20110922
  3. BACTRIM DS [Concomitant]
     Indication: OPPORTUNISTIC INFECTION PROPHYLAXIS
     Dosage: 1 TABLET 3X/WK
     Route: 048
     Dates: end: 20111019
  4. MABTHERA [Suspect]
     Route: 042
     Dates: start: 20110920, end: 20110920
  5. VALACICLOVIR [Concomitant]
     Indication: OPPORTUNISTIC INFECTION PROPHYLAXIS
     Route: 048

REACTIONS (2)
  - PANCYTOPENIA [None]
  - PNEUMONIA [None]
